FAERS Safety Report 11500706 (Version 1)
Quarter: 2015Q3

REPORT INFORMATION
  Report Type: Spontaneous
  Country: US (occurrence: None)
  Receive Date: 20150911
  Receipt Date: 20150911
  Transmission Date: 20151125
  Serious: Yes (Disabling)
  Sender: FDA-Public Use
  Company Number: None

PATIENT
  Age: 61 Year
  Sex: Female
  Weight: 92.99 kg

DRUGS (16)
  1. NAPROXEN. [Concomitant]
     Active Substance: NAPROXEN
  2. CALCIUM [Concomitant]
     Active Substance: CALCIUM
  3. CALCIUM [Concomitant]
     Active Substance: CALCIUM
  4. BELVIQ [Suspect]
     Active Substance: LORCASERIN HYDROCHLORIDE
     Indication: OBESITY
     Route: 048
     Dates: start: 20150216, end: 201504
  5. MULTIVITAMINS [Concomitant]
     Active Substance: VITAMINS
  6. DICLOFINAC [Concomitant]
  7. AIRNAU THYROID [Concomitant]
  8. NORCO 5-325 [Concomitant]
  9. NAPROXEN. [Concomitant]
     Active Substance: NAPROXEN
  10. SYMBICORT [Concomitant]
     Active Substance: BUDESONIDE\FORMOTEROL FUMARATE DIHYDRATE
  11. VENTALIN INHALER [Concomitant]
  12. ATENOLEL [Concomitant]
  13. PETERVA [Concomitant]
  14. HYZAAR [Concomitant]
     Active Substance: HYDROCHLOROTHIAZIDE\LOSARTAN POTASSIUM
  15. SYMBICORT [Concomitant]
     Active Substance: BUDESONIDE\FORMOTEROL FUMARATE DIHYDRATE
  16. ALEVE [Concomitant]
     Active Substance: NAPROXEN SODIUM

REACTIONS (9)
  - Pain in extremity [None]
  - Coordination abnormal [None]
  - Impaired work ability [None]
  - Tremor [None]
  - Arthritis [None]
  - Joint dislocation [None]
  - Asthenia [None]
  - Fatigue [None]
  - Fine motor skill dysfunction [None]

NARRATIVE: CASE EVENT DATE: 201503
